FAERS Safety Report 13884146 (Version 2)
Quarter: 2018Q1

REPORT INFORMATION
  Report Type: Report from Study
  Country: None (occurrence: BR)
  Receive Date: 20170821
  Receipt Date: 20180122
  Transmission Date: 20180508
  Serious: Yes (Other)
  Sender: FDA-Public Use
  Company Number: BR-ABBVIE-17K-020-1985325-00

PATIENT
  Sex: Female
  Weight: 73 kg

DRUGS (1)
  1. HUMIRA [Suspect]
     Active Substance: ADALIMUMAB
     Indication: RHEUMATOID ARTHRITIS
     Route: 058
     Dates: start: 20100101

REACTIONS (2)
  - Osteoarthritis [Not Recovered/Not Resolved]
  - Foot deformity [Not Recovered/Not Resolved]

NARRATIVE: CASE EVENT DATE: 2015
